FAERS Safety Report 5755012-2 (Version None)
Quarter: 2008Q2

REPORT INFORMATION
  Report Type: 
  Country: None (occurrence: None)
  Receive Date: 20080528
  Receipt Date: 20080528
  Transmission Date: 20081010
  Serious: Yes (Hospitalization)
  Sender: FDA-Public Use
  Company Number: None

PATIENT
  Age: 55 Year
  Sex: Male

DRUGS (1)
  1. VARENICLINE [Suspect]
     Dosage: 1 MG BID PO
     Route: 048
     Dates: start: 20080506, end: 20080515

REACTIONS (4)
  - AGITATION [None]
  - CONFUSIONAL STATE [None]
  - PSYCHOTIC DISORDER [None]
  - SUICIDAL IDEATION [None]
